FAERS Safety Report 7632692-8 (Version None)
Quarter: 2011Q3

REPORT INFORMATION
  Report Type: 
  Country: None (occurrence: None)
  Receive Date: 20110725
  Receipt Date: 20110107
  Transmission Date: 20111222
  Serious: No
  Sender: FDA-Public Use
  Company Number: US-BRISTOL-MYERS SQUIBB COMPANY-15418437

PATIENT
  Age: 86 Year
  Sex: Female
  Weight: 57 kg

DRUGS (5)
  1. COUMADIN [Suspect]
     Indication: ATRIAL FIBRILLATION
     Dosage: 5MG FROM MONDAY TO FRIDAY,2.5 MG SATURDAY AND SUNDAY.
  2. PLAVIX [Suspect]
     Indication: CARDIOVASCULAR DISORDER
     Dates: start: 20100101
  3. MULTAQ [Concomitant]
  4. BLOOD PRESSURE MEDICATION [Concomitant]
  5. CHOLESTEROL MEDICATION [Concomitant]

REACTIONS (1)
  - CONFUSIONAL STATE [None]
